FAERS Safety Report 23924093 (Version 1)
Quarter: 2024Q2

REPORT INFORMATION
  Report Type: Spontaneous
  Country: CA (occurrence: CA)
  Receive Date: 20240531
  Receipt Date: 20240531
  Transmission Date: 20240716
  Serious: Yes (Other)
  Sender: FDA-Public Use
  Company Number: CA-TEVA-VS-3202952

PATIENT
  Age: 69 Year
  Sex: Female
  Weight: 70.7 kg

DRUGS (5)
  1. BUPROPION [Suspect]
     Active Substance: BUPROPION
     Indication: Depression
     Dosage: ACT BUPROPION XL
     Route: 065
     Dates: start: 20240522
  2. GABAPENTIN [Concomitant]
     Active Substance: GABAPENTIN
     Route: 065
  3. FENTANYL [Suspect]
     Active Substance: FENTANYL\FENTANYL CITRATE
     Indication: Pain
     Route: 065
  4. FENTANYL [Suspect]
     Active Substance: FENTANYL\FENTANYL CITRATE
     Indication: Pain
     Dosage: USED TO BE 25 MICROGRAM BUT HAS SINCE BEEN REDUCED
     Route: 065
  5. BENADRYL [Concomitant]
     Active Substance: DIPHENHYDRAMINE HYDROCHLORIDE
     Route: 065

REACTIONS (8)
  - Cerebral disorder [Unknown]
  - Respiratory depression [Unknown]
  - Skin irritation [Unknown]
  - Insomnia [Unknown]
  - Pruritus [Unknown]
  - Coordination abnormal [Unknown]
  - Ear discomfort [Unknown]
  - Erythema [Unknown]

NARRATIVE: CASE EVENT DATE: 20240501
